FAERS Safety Report 24323983 (Version 5)
Quarter: 2024Q4

REPORT INFORMATION
  Report Type: Spontaneous
  Country: US (occurrence: US)
  Receive Date: 20240916
  Receipt Date: 20241119
  Transmission Date: 20250115
  Serious: No
  Sender: ROCHE
  Company Number: US-ROCHE-10000081726

PATIENT
  Age: 31 Year
  Sex: Male

DRUGS (3)
  1. HEMLIBRA [Suspect]
     Active Substance: EMICIZUMAB-KXWH
     Indication: Factor VIII deficiency
     Dosage: STRENGTH- 150 MG/ML AND 60 MG/0.4ML
     Route: 058
     Dates: start: 201702
  2. HEMLIBRA [Suspect]
     Active Substance: EMICIZUMAB-KXWH
     Dosage: STRENGTH- 60 MG/0.4ML
     Route: 058
     Dates: start: 201702
  3. HEMLIBRA [Suspect]
     Active Substance: EMICIZUMAB-KXWH
     Dosage: STRENGTH- 150 MG/ML
     Route: 058
     Dates: start: 201702

REACTIONS (2)
  - Haemorrhage [Recovered/Resolved]
  - Limb injury [Unknown]
